FAERS Safety Report 25024888 (Version 2)
Quarter: 2025Q2

REPORT INFORMATION
  Report Type: Report from Study
  Country: BR (occurrence: BR)
  Receive Date: 20250228
  Receipt Date: 20250623
  Transmission Date: 20250717
  Serious: Yes (Disabling, Other)
  Sender: TAKEDA
  Company Number: BR-TAKEDA-BR202028289

PATIENT
  Age: 15 Year
  Sex: Male
  Weight: 64 kg

DRUGS (10)
  1. ANTI-INHIBITOR COAGULANT COMPLEX [Suspect]
     Active Substance: ANTI-INHIBITOR COAGULANT COMPLEX
     Indication: Haemophilia B with anti factor IX
  2. ANTI-INHIBITOR COAGULANT COMPLEX [Suspect]
     Active Substance: ANTI-INHIBITOR COAGULANT COMPLEX
  3. ANTI-INHIBITOR COAGULANT COMPLEX [Suspect]
     Active Substance: ANTI-INHIBITOR COAGULANT COMPLEX
  4. ANTI-INHIBITOR COAGULANT COMPLEX [Suspect]
     Active Substance: ANTI-INHIBITOR COAGULANT COMPLEX
  5. COAGULATION FACTOR VII HUMAN [Suspect]
     Active Substance: COAGULATION FACTOR VII HUMAN
     Indication: Product used for unknown indication
     Dosage: UNK UNK, QOD
  6. COAGULATION FACTOR VII HUMAN [Suspect]
     Active Substance: COAGULATION FACTOR VII HUMAN
  7. COAGULATION FACTOR IX HUMAN [Suspect]
     Active Substance: COAGULATION FACTOR IX HUMAN
     Indication: Product used for unknown indication
     Dosage: UNK UNK, QOD
  8. COAGULATION FACTOR IX HUMAN [Suspect]
     Active Substance: COAGULATION FACTOR IX HUMAN
  9. IRON POLYMALTOSE [Concomitant]
     Active Substance: IRON POLYMALTOSE
     Indication: Anaemia
  10. NOVOSEVEN [Concomitant]
     Active Substance: COAGULATION FACTOR VIIA RECOMBINANT HUMAN

REACTIONS (9)
  - Drug hypersensitivity [Unknown]
  - Hypersensitivity [Recovered/Resolved]
  - Anti factor VIII antibody increased [Unknown]
  - Wheelchair user [Unknown]
  - Haemorrhage [Recovered/Resolved]
  - Haemarthrosis [Not Recovered/Not Resolved]
  - Poor venous access [Not Recovered/Not Resolved]
  - Patient-device incompatibility [Unknown]
  - Dysstasia [Unknown]

NARRATIVE: CASE EVENT DATE: 20200801
